FAERS Safety Report 9655592 (Version 3)
Quarter: 2014Q1

REPORT INFORMATION
  Report Type: Spontaneous
  Country: US (occurrence: US)
  Receive Date: 20131030
  Receipt Date: 20140312
  Transmission Date: 20141002
  Serious: Yes (Hospitalization, Other)
  Sender: FDA-Public Use
  Company Number: PHHY2013US119979

PATIENT
  Sex: Female

DRUGS (4)
  1. METOPROLOL [Suspect]
  2. SALBUTAMOL SULPHATE [Suspect]
     Indication: CHRONIC OBSTRUCTIVE PULMONARY DISEASE
     Dosage: UNK UKN, UNK
  3. SALBUTAMOL SULPHATE [Suspect]
     Dosage: UNK UKN, UNK
  4. SIMVASTATIN [Suspect]
     Dosage: UNK UKN, UNK

REACTIONS (33)
  - Lung neoplasm malignant [Unknown]
  - Atelectasis [Unknown]
  - Pulmonary mass [Not Recovered/Not Resolved]
  - Cough [Unknown]
  - Neoplasm malignant [Recovered/Resolved]
  - Neuropathy peripheral [Unknown]
  - Restless legs syndrome [Unknown]
  - Dyskinesia [Unknown]
  - Tremor [Recovered/Resolved]
  - Bunion [Unknown]
  - Pain in extremity [Unknown]
  - Rosacea [Unknown]
  - Eczema [Unknown]
  - Dry skin [Unknown]
  - Skin fissures [Unknown]
  - Skin haemorrhage [Unknown]
  - Decreased appetite [Unknown]
  - Blood glucose increased [Unknown]
  - Chest discomfort [Unknown]
  - Blood pressure abnormal [Unknown]
  - Hypothyroidism [Unknown]
  - Fluid retention [Unknown]
  - Ill-defined disorder [Unknown]
  - Pruritus [Unknown]
  - Blood pressure decreased [Unknown]
  - Myalgia [Unknown]
  - Muscle spasms [Unknown]
  - Insomnia [Not Recovered/Not Resolved]
  - Rash [Unknown]
  - Arthritis [Unknown]
  - Depressed mood [Unknown]
  - Fatigue [Unknown]
  - Drug administration error [Unknown]
